FAERS Safety Report 9350668 (Version 3)
Quarter: 2013Q3

REPORT INFORMATION
  Report Type: Spontaneous
  Country: BR (occurrence: BR)
  Receive Date: 20130617
  Receipt Date: 20130819
  Transmission Date: 20140515
  Serious: Yes (Other)
  Sender: FDA-Public Use
  Company Number: PHHY2013BR059856

PATIENT
  Age: 80 Year
  Sex: Male

DRUGS (4)
  1. TRILEPTAL [Suspect]
     Indication: NEUROPATHY PERIPHERAL
     Dosage: 1 DF, QD
     Route: 048
     Dates: start: 20130510, end: 20130526
  2. TRILEPTAL [Suspect]
     Indication: OFF LABEL USE
  3. SUSTRATE [Concomitant]
     Indication: ARRHYTHMIA
     Dosage: 2 DF, DAILY
     Route: 048
  4. A.A.S. [Concomitant]
     Indication: ANTICOAGULANT THERAPY
     Dosage: 1 DF, DAILY
     Route: 048
     Dates: start: 2009

REACTIONS (6)
  - Psychotic behaviour [Recovered/Resolved]
  - Aggression [Recovered/Resolved]
  - Hallucination [Recovered/Resolved]
  - Feeding disorder [Recovered/Resolved]
  - Abnormal behaviour [Recovered/Resolved]
  - Gait disturbance [Recovered/Resolved]
